FAERS Safety Report 25918713 (Version 2)
Quarter: 2025Q4

REPORT INFORMATION
  Report Type: Spontaneous
  Country: US (occurrence: US)
  Receive Date: 20251014
  Receipt Date: 20251023
  Transmission Date: 20260118
  Serious: No
  Sender: PFIZER
  Company Number: US-PFIZER INC-PV202500121630

PATIENT
  Age: 64 Year
  Sex: Male

DRUGS (1)
  1. DIFLUCAN [Suspect]
     Active Substance: FLUCONAZOLE
     Indication: Asthma
     Dosage: UNK

REACTIONS (3)
  - Drug intolerance [Unknown]
  - Rash [Unknown]
  - Off label use [Unknown]
